FAERS Safety Report 9771244 (Version 1)
Quarter: 2013Q4

REPORT INFORMATION
  Report Type: Spontaneous
  Country: US (occurrence: US)
  Receive Date: 20131218
  Receipt Date: 20131218
  Transmission Date: 20140711
  Serious: No
  Sender: FDA-Public Use
  Company Number: US-009507513-1310USA014239

PATIENT
  Age: 55 Year
  Sex: Male

DRUGS (5)
  1. DULERA [Suspect]
     Indication: ASTHMA
     Dosage: 4 PUFFS PER DAY
     Dates: start: 201307
  2. DULERA [Suspect]
     Dosage: 2 PUFFS/DAY
     Dates: start: 2013
  3. SPIRIVA [Concomitant]
  4. MONTELUKAST SODIUM [Concomitant]
  5. HYDROCHLOROTHIAZIDE [Concomitant]
     Dosage: UNK

REACTIONS (3)
  - Dysphonia [Not Recovered/Not Resolved]
  - Medication error [Unknown]
  - Product quality issue [Unknown]
